FAERS Safety Report 6451236-X (Version None)
Quarter: 2009Q4

REPORT INFORMATION
  Report Type: 
  Country: None (occurrence: None)
  Receive Date: 20091123
  Receipt Date: 20091111
  Transmission Date: 20100525
  Serious: Yes (Life-Threatening, Hospitalization, Other)
  Sender: FDA-Public Use
  Company Number: PT-JNJFOC-20061000075

PATIENT
  Age: 34 Year
  Sex: Female

DRUGS (7)
  1. REMICADE [Suspect]
     Indication: COLITIS ULCERATIVE
     Route: 042
  2. AZATHIOPRINE [Suspect]
     Dosage: ROUTE: ORAL (PO)
  3. AZATHIOPRINE [Suspect]
     Indication: COLITIS ULCERATIVE
     Dosage: ^DOSE 1.0-2.4 MG/KG/DAY^
  4. AZATHIOPRINE [Suspect]
     Indication: INFLAMMATORY BOWEL DISEASE
     Dosage: ^DOSE 1.0-2.4 MG/KG/DAY^
  5. PREDNISONE [Concomitant]
     Indication: INFLAMMATORY BOWEL DISEASE
     Route: 048
  6. MYCOPHENOLATE MOFETIL [Concomitant]
     Indication: COLITIS ULCERATIVE
  7. CORTICOIDS [Concomitant]

REACTIONS (6)
  - B-CELL LYMPHOMA [None]
  - COLITIS ULCERATIVE [None]
  - EPSTEIN-BARR VIRUS INFECTION [None]
  - HERPES OESOPHAGITIS [None]
  - ORAL CANDIDIASIS [None]
  - PERIRECTAL ABSCESS [None]
